FAERS Safety Report 9426936 (Version 1)
Quarter: 2013Q3

REPORT INFORMATION
  Report Type: Spontaneous
  Country: US (occurrence: None)
  Receive Date: 20130729
  Receipt Date: 20130729
  Transmission Date: 20140515
  Serious: No
  Sender: FDA-Public Use
  Company Number: None

PATIENT
  Age: 20 Year
  Sex: Male
  Weight: 74.84 kg

DRUGS (1)
  1. VIMPAT [Suspect]
     Indication: CONVULSION
     Route: 048
     Dates: start: 201101, end: 201107

REACTIONS (14)
  - Restlessness [None]
  - Anger [None]
  - Personality change [None]
  - Paranoia [None]
  - Memory impairment [None]
  - Disturbance in attention [None]
  - Dizziness [None]
  - Depression [None]
  - Insomnia [None]
  - Abnormal behaviour [None]
  - Imprisonment [None]
  - Memory impairment [None]
  - Palpitations [None]
  - Hypersomnia [None]
